FAERS Safety Report 23796677 (Version 1)
Quarter: 2024Q2

REPORT INFORMATION
  Report Type: Spontaneous
  Country: DE (occurrence: DE)
  Receive Date: 20240430
  Receipt Date: 20240430
  Transmission Date: 20240716
  Serious: Yes (Other)
  Sender: FDA-Public Use
  Company Number: None

PATIENT
  Age: 55 Year
  Sex: Male
  Weight: 95 kg

DRUGS (1)
  1. LATANOPROST [Suspect]
     Active Substance: LATANOPROST
     Indication: Ocular hypertension
     Dosage: 0,2 MG
     Dates: start: 20240305, end: 20240409

REACTIONS (5)
  - Blood pressure increased [Recovering/Resolving]
  - Sleep disorder [Recovering/Resolving]
  - Dyspnoea [Recovering/Resolving]
  - Myalgia [Recovering/Resolving]
  - Dizziness [Recovering/Resolving]

NARRATIVE: CASE EVENT DATE: 20240306
